FAERS Safety Report 9454190 (Version 1)
Quarter: 2013Q3

REPORT INFORMATION
  Report Type: Spontaneous
  Country: US (occurrence: None)
  Receive Date: 20130807
  Receipt Date: 20130807
  Transmission Date: 20140515
  Serious: Yes (Other)
  Sender: FDA-Public Use
  Company Number: VAL_02663_2013

PATIENT
  Age: 55 Year
  Sex: Female

DRUGS (1)
  1. CARBAMAZEPINE [Suspect]
     Indication: CONVULSION
     Dosage: DF

REACTIONS (8)
  - Pruritus generalised [None]
  - Rash pruritic [None]
  - Pemphigoid [None]
  - Skin hyperpigmentation [None]
  - Skin plaque [None]
  - Eosinophilia [None]
  - Leukocytosis [None]
  - Blood immunoglobulin E increased [None]
